FAERS Safety Report 9529424 (Version 3)
Quarter: 2013Q4

REPORT INFORMATION
  Report Type: Spontaneous
  Country: ES (occurrence: ES)
  Receive Date: 20130917
  Receipt Date: 20131209
  Transmission Date: 20140711
  Serious: Yes (Hospitalization, Other)
  Sender: FDA-Public Use
  Company Number: ES-ABBVIE-13P-144-1147402-00

PATIENT
  Sex: Male
  Weight: 52 kg

DRUGS (5)
  1. HUMIRA [Suspect]
     Indication: CROHN^S DISEASE
     Dates: start: 20090601, end: 20121201
  2. HUMIRA [Suspect]
     Indication: ANORECTAL DISORDER
     Dosage: INDUCTION PERIOD WITH DOSE OF 80 MG
  3. AZATHIOPRINE [Suspect]
     Indication: CROHN^S DISEASE
     Route: 048
     Dates: start: 20060110, end: 20130501
  4. CIMZIA [Suspect]
     Indication: CROHN^S DISEASE
     Route: 058
     Dates: start: 20121210, end: 20130511
  5. INFLIXIMAB [Suspect]
     Indication: CROHN^S DISEASE
     Dosage: 5 MG/KG EVERY 6-8 WEEKS
     Route: 042
     Dates: start: 20070302, end: 20090601

REACTIONS (3)
  - Surgery [Unknown]
  - Colon cancer [Recovering/Resolving]
  - Drug ineffective [Unknown]
